FAERS Safety Report 8282008-1 (Version None)
Quarter: 2012Q2

REPORT INFORMATION
  Report Type: 
  Country: None (occurrence: None)
  Receive Date: 20120413
  Receipt Date: 20120405
  Transmission Date: 20120825
  Serious: Yes (Hospitalization)
  Sender: FDA-Public Use
  Company Number: 2012SP001049

PATIENT
  Age: 65 Year
  Sex: Male

DRUGS (4)
  1. ALBUTEROL [Concomitant]
     Indication: LUNG DISORDER
  2. BUDESONIDE [Concomitant]
     Indication: LUNG DISORDER
  3. SYMBICORT [Concomitant]
     Indication: LUNG DISORDER
  4. BROVANA [Suspect]
     Indication: LUNG DISORDER
     Route: 055
     Dates: start: 20110101

REACTIONS (9)
  - PYREXIA [None]
  - MALAISE [None]
  - COLD-STIMULUS HEADACHE [None]
  - MUSCLE SPASMS [None]
  - DIARRHOEA [None]
  - CHILLS [None]
  - COLD SWEAT [None]
  - OXYGEN SATURATION DECREASED [None]
  - HEADACHE [None]
